FAERS Safety Report 7479413-X (Version None)
Quarter: 2011Q2

REPORT INFORMATION
  Report Type: 
  Country: None (occurrence: None)
  Receive Date: 20110513
  Receipt Date: 20110510
  Transmission Date: 20111010
  Serious: Yes (Other)
  Sender: FDA-Public Use
  Company Number: US-PFIZER INC-2011099330

PATIENT
  Sex: Female
  Weight: 109 kg

DRUGS (13)
  1. XANAX [Concomitant]
     Indication: HEPATIC NEOPLASM MALIGNANT
     Dosage: 0.5 MG, 2X/DAY
  2. DIOVAN [Concomitant]
     Indication: HYPERTENSION
     Dosage: UNK
  3. LASIX [Concomitant]
     Indication: DIURETIC THERAPY
     Dosage: 20 MG, UNK
  4. SEROQUEL [Concomitant]
     Indication: PANIC ATTACK
     Dosage: UNK
  5. SERRAPEPTASE [Concomitant]
     Indication: BONE DISORDER
     Dosage: UNK
  6. KLOR-CON [Concomitant]
     Indication: HYPERTENSION
     Dosage: 220 MG, 2X/DAY
  7. OXYGEN [Concomitant]
     Dosage: UNK
  8. LIPITOR [Suspect]
     Indication: BLOOD CHOLESTEROL ABNORMAL
     Dosage: 20 MG, 1X/DAY
     Route: 048
     Dates: start: 20110202
  9. COUMADIN [Suspect]
     Indication: DEEP VEIN THROMBOSIS
     Dosage: 4 MG, 1X/DAY
  10. KLOR-CON [Concomitant]
     Indication: SWELLING
  11. ALLEGRA [Concomitant]
     Indication: HYPERSENSITIVITY
     Dosage: UNK
  12. XANAX [Concomitant]
     Indication: PANIC ATTACK
  13. AMBIEN [Concomitant]
     Indication: SLEEP DISORDER
     Dosage: 10 MG, 1X/DAY

REACTIONS (4)
  - FATIGUE [None]
  - EPISTAXIS [None]
  - MYALGIA [None]
  - BLOOD GLUCOSE INCREASED [None]
